FAERS Safety Report 10655285 (Version 1)
Quarter: 2014Q4

REPORT INFORMATION
  Report Type: Spontaneous
  Country: US (occurrence: US)
  Receive Date: 20141216
  Receipt Date: 20141216
  Transmission Date: 20150529
  Serious: Yes (Hospitalization)
  Sender: FDA-Public Use
  Company Number: US-JNJFOC-20141207599

PATIENT
  Age: 74 Year
  Sex: Male

DRUGS (2)
  1. XARELTO [Suspect]
     Active Substance: RIVAROXABAN
     Indication: DEEP VEIN THROMBOSIS
     Route: 048
     Dates: end: 20141203
  2. LASIX [Concomitant]
     Active Substance: FUROSEMIDE
     Route: 065

REACTIONS (4)
  - Haemoglobin decreased [Recovered/Resolved]
  - Gastrointestinal haemorrhage [Recovered/Resolved]
  - Treatment noncompliance [Unknown]
  - Oesophageal polyp [Recovered/Resolved]

NARRATIVE: CASE EVENT DATE: 20141203
